FAERS Safety Report 6384722-1 (Version None)
Quarter: 2009Q3

REPORT INFORMATION
  Report Type: 
  Country: None (occurrence: None)
  Receive Date: 20090929
  Receipt Date: 20090914
  Transmission Date: 20100115
  Serious: Yes (Other)
  Sender: FDA-Public Use
  Company Number: B0594827A

PATIENT
  Age: 24 Month
  Sex: Male

DRUGS (7)
  1. BUSULPHAN TABLET (BUSULFAN) (GENERIC) [Suspect]
     Indication: BONE MARROW TRANSPLANT
     Dosage: ORAL
     Route: 048
  2. MELPHALAN HYDROCHLORIDE [Suspect]
     Indication: BONE MARROW TRANSPLANT
  3. CYCLOPHOSPHAMIDE [Suspect]
     Indication: BONE MARROW TRANSPLANT
  4. ALEMTUZUMAB (ALEMTUZUMAB)(FORMULATION UNKNOWN) [Suspect]
     Indication: PROPHYLAXIS AGAINST TRANSPLANT REJECTION
  5. CYCLOSPORINE [Suspect]
     Indication: PROPHYLAXIS AGAINST TRANSPLANT REJECTION
  6. METHOTREXATE [Suspect]
     Indication: PROPHYLAXIS AGAINST TRANSPLANT REJECTION
  7. ANTI-INFECTIVE MEDICATION (ANTI-INFECTIVE MEDICATION)(FORMULATION UNKN [Suspect]

REACTIONS (1)
  - VENOOCCLUSIVE DISEASE [None]
